FAERS Safety Report 9828806 (Version 1)
Quarter: 2014Q1

REPORT INFORMATION
  Report Type: Report from Study
  Country: US (occurrence: US)
  Receive Date: 20140118
  Receipt Date: 20140118
  Transmission Date: 20141002
  Serious: Yes (Hospitalization, Other)
  Sender: FDA-Public Use
  Company Number: US-ROCHE-1333186

PATIENT
  Sex: Female

DRUGS (7)
  1. RANIBIZUMAB [Suspect]
     Indication: MACULAR DEGENERATION
     Dosage: BEEN TAKING FOR SEVERAL YEARS
     Route: 065
  2. SINEQUAN [Concomitant]
     Indication: INSOMNIA
     Dosage: TAKES AT NIGHT
     Route: 048
  3. ZOCOR [Concomitant]
     Indication: BLOOD CHOLESTEROL
     Route: 048
  4. LISINOPRIL [Concomitant]
     Indication: HYPERTENSION
     Route: 048
  5. TRAMADOL [Concomitant]
     Indication: FIBROMYALGIA
     Dosage: TAKE ABOUT 2-3 A DAY
     Route: 048
  6. SYNTHROID [Concomitant]
     Indication: HYPOTHYROIDISM
     Route: 065
  7. SERTRALINE [Concomitant]
     Indication: DEPRESSION
     Route: 065

REACTIONS (7)
  - Blindness [Unknown]
  - Fall [Unknown]
  - Upper limb fracture [Unknown]
  - Insomnia [Not Recovered/Not Resolved]
  - Fibromyalgia [Not Recovered/Not Resolved]
  - Pain [Unknown]
  - Acquired corneal dystrophy [Unknown]
